FAERS Safety Report 4967058-2 (Version None)
Quarter: 2006Q2

REPORT INFORMATION
  Report Type: 
  Country: None (occurrence: None)
  Receive Date: 20060408
  Receipt Date: 20060330
  Transmission Date: 20061013
  Serious: Yes (Other)
  Sender: FDA-Public Use
  Company Number: DE-ABBOTT-06P-062-0329695-00

PATIENT
  Sex: Female

DRUGS (4)
  1. ERGENYL CHRONO TABLETS [Suspect]
     Indication: GRAND MAL CONVULSION
     Route: 048
  2. LEVETIRACETAM [Concomitant]
     Indication: DRUG USE FOR UNKNOWN INDICATION
     Route: 065
  3. LEVETIRACETAM [Concomitant]
     Route: 065
  4. FOLINIC ACID [Concomitant]
     Indication: DRUG USE FOR UNKNOWN INDICATION
     Route: 065

REACTIONS (2)
  - CHORIOAMNIONITIS [None]
  - INFLAMMATION [None]
